FAERS Safety Report 15956815 (Version 2)
Quarter: 2019Q1

REPORT INFORMATION
  Report Type: Report from Study
  Country: None (occurrence: US)
  Receive Date: 20190213
  Receipt Date: 20190327
  Transmission Date: 20190417
  Serious: Yes (Other)
  Sender: FDA-Public Use
  Company Number: US-ABBVIE-19K-163-2658761-00

PATIENT
  Age: 56 Year
  Sex: Female
  Weight: 70.37 kg

DRUGS (1)
  1. HUMIRA [Suspect]
     Active Substance: ADALIMUMAB
     Indication: CROHN^S DISEASE
     Route: 058
     Dates: start: 2017

REACTIONS (2)
  - Gastrointestinal obstruction [Recovered/Resolved]
  - Crohn^s disease [Unknown]

NARRATIVE: CASE EVENT DATE: 20181217
